FAERS Safety Report 22397185 (Version 1)
Quarter: 2023Q2

REPORT INFORMATION
  Report Type: Spontaneous
  Country: BR (occurrence: BR)
  Receive Date: 20230602
  Receipt Date: 20230602
  Transmission Date: 20230721
  Serious: Yes (Other)
  Sender: FDA-Public Use
  Company Number: BR-BoehringerIngelheim-2023-BI-240453

PATIENT
  Age: 62 Year
  Sex: Male
  Weight: 75 kg

DRUGS (12)
  1. FENOTEROL HYDROBROMIDE\IPRATROPIUM BROMIDE [Suspect]
     Active Substance: FENOTEROL HYDROBROMIDE\IPRATROPIUM BROMIDE
     Indication: Asthma
     Dosage: 2 PUFFS 1 TIME A DAY.
     Route: 055
     Dates: start: 202302
  2. FENOTEROL HYDROBROMIDE\IPRATROPIUM BROMIDE [Suspect]
     Active Substance: FENOTEROL HYDROBROMIDE\IPRATROPIUM BROMIDE
     Indication: Chronic obstructive pulmonary disease
  3. BEROTEC [Suspect]
     Active Substance: FENOTEROL HYDROBROMIDE
     Indication: Asthma
     Dosage: ON AVERAGE 2 TO 3 TIMES A DAY WITH 5 TO 7 DROPS EACH TIME.
     Route: 055
  4. BEROTEC [Suspect]
     Active Substance: FENOTEROL HYDROBROMIDE
     Indication: Chronic obstructive pulmonary disease
  5. ATROVENT [Suspect]
     Active Substance: IPRATROPIUM BROMIDE
     Indication: Asthma
     Dosage: ON AVERAGE 2 TO 3 TIMES A DAY WITH 5 TO 7 DROPS EACH TIME.
     Route: 055
  6. ATROVENT [Suspect]
     Active Substance: IPRATROPIUM BROMIDE
     Indication: Chronic obstructive pulmonary disease
  7. Alenia [Concomitant]
     Indication: Chronic obstructive pulmonary disease
     Dosage: 2 PUFFS IN THE MORNING AND 2 PUFFS IN THE EVENING.
     Route: 055
     Dates: start: 2003
  8. BUDESONIDE [Concomitant]
     Active Substance: BUDESONIDE
     Indication: Chronic obstructive pulmonary disease
     Dosage: 2 PUFFS IN THE MORNING AND 2 PUFFS IN THE EVENING.
     Route: 055
     Dates: start: 2003
  9. TIOTROPIUM BROMIDE [Concomitant]
     Active Substance: TIOTROPIUM BROMIDE
     Indication: Chronic obstructive pulmonary disease
     Dosage: 1 PUFF IN THE AFTERNOON.
     Route: 055
     Dates: start: 2003
  10. sinvastatina 20mg [Concomitant]
     Indication: Product used for unknown indication
     Route: 048
     Dates: start: 2017
  11. Nervamin 300mg [Concomitant]
     Indication: Product used for unknown indication
     Route: 048
     Dates: start: 2017
  12. Acebrofilina 50mg [Concomitant]
     Indication: Product used for unknown indication
     Route: 048
     Dates: start: 20230524

REACTIONS (5)
  - Asthmatic crisis [Unknown]
  - Prostatomegaly [Unknown]
  - Diabetes mellitus [Unknown]
  - Tachycardia [Unknown]
  - Influenza [Unknown]

NARRATIVE: CASE EVENT DATE: 20230201
